FAERS Safety Report 12167877 (Version 2)
Quarter: 2016Q1

REPORT INFORMATION
  Report Type: Spontaneous
  Country: CA (occurrence: CA)
  Receive Date: 20160310
  Receipt Date: 20160315
  Transmission Date: 20160526
  Serious: Yes (Other)
  Sender: FDA-Public Use
  Company Number: CHPA2016CA002802

PATIENT
  Age: 58 Year
  Sex: Female

DRUGS (1)
  1. KERI UNKNOWN [Suspect]
     Active Substance: LANOLIN\MINERAL OIL
     Indication: DRY SKIN
     Dosage: UNK UNK, BID (TWICE A DAY)
     Route: 061

REACTIONS (1)
  - Breast cancer [Recovered/Resolved]
